FAERS Safety Report 22526778 (Version 2)
Quarter: 2023Q2

REPORT INFORMATION
  Report Type: Spontaneous
  Country: JP (occurrence: JP)
  Receive Date: 20230606
  Receipt Date: 20230612
  Transmission Date: 20230721
  Serious: Yes (Hospitalization)
  Sender: FDA-Public Use
  Company Number: JP-PFIZER INC-PV202300097906

PATIENT
  Age: 65 Year
  Sex: Male

DRUGS (2)
  1. INLYTA [Suspect]
     Active Substance: AXITINIB
     Indication: Renal cancer recurrent
     Dosage: 6 MG, DAILY
     Route: 048
  2. BAVENCIO [Concomitant]
     Active Substance: AVELUMAB
     Indication: Renal cancer recurrent
     Dosage: 10 MG/KG
     Route: 042

REACTIONS (2)
  - Cardiac failure acute [Recovered/Resolved]
  - Hypertension [Unknown]
